FAERS Safety Report 5902540-2 (Version None)
Quarter: 2008Q3

REPORT INFORMATION
  Report Type: 
  Country: None (occurrence: None)
  Receive Date: 20080925
  Receipt Date: 20080911
  Transmission Date: 20090109
  Serious: Yes (Other)
  Sender: FDA-Public Use
  Company Number: 238701J08USA

PATIENT
  Age: 41 Year
  Sex: Female

DRUGS (5)
  1. REBIF [Suspect]
     Indication: MULTIPLE SCLEROSIS
     Dosage: 44 MCG, 3 IN 1 WEEKS, SUBCUTANEOUS
     Route: 058
     Dates: start: 20080522
  2. ALEVE (CAPLET) [Concomitant]
  3. EXCEDRIN (EXCEDRIN /00214201/) [Concomitant]
  4. CITALOPRAM (CITALOPRAM /00582601/) [Concomitant]
  5. UNSPECIFIED BIRTH CONTROL MEDICATION (ORAL CONTRACEPTIVE NOS) [Concomitant]

REACTIONS (1)
  - THROMBOPHLEBITIS SUPERFICIAL [None]
